FAERS Safety Report 8776974 (Version 3)
Quarter: 2012Q4

REPORT INFORMATION
  Report Type: Report from Study
  Country: DE (occurrence: DE)
  Receive Date: 20120911
  Receipt Date: 20121008
  Transmission Date: 20130627
  Serious: Yes (Hospitalization)
  Sender: FDA-Public Use
  Company Number: DE-GLAXOSMITHKLINE-B0804370B

PATIENT
  Sex: Male

DRUGS (17)
  1. PAZOPANIB [Suspect]
     Indication: GASTRIC CANCER
     Route: 048
     Dates: start: 20120404
  2. 5-FU [Suspect]
     Indication: GASTRIC CANCER
     Dosage: 5590MG per day
     Route: 065
     Dates: start: 20120404
  3. OXALIPLATIN [Suspect]
     Indication: GASTRIC CANCER
     Dosage: 18200MG per day
     Route: 065
     Dates: start: 20120404
  4. LEUCOVORIN [Suspect]
     Indication: GASTRIC CANCER
     Dosage: 430MG per day
     Route: 065
     Dates: start: 20120404
  5. LYRICA [Suspect]
     Indication: POLYNEUROPATHY
     Dosage: 75MG per day
     Route: 048
     Dates: start: 20120706, end: 20120830
  6. PANTOPRAZOL [Concomitant]
     Indication: PROPHYLAXIS
     Dosage: 40MG per day
     Route: 048
     Dates: start: 20120324, end: 20120731
  7. TINZAPARIN SODIUM [Concomitant]
     Indication: THROMBOSIS PROPHYLAXIS
     Dosage: .7ML per day
     Route: 058
     Dates: start: 20120227
  8. TRAMADOL [Concomitant]
     Route: 048
     Dates: start: 20120404
  9. APREPITANT [Concomitant]
     Indication: PROPHYLACTIC CHEMOTHERAPY
     Dosage: 125MG per day
     Route: 048
     Dates: start: 20120404
  10. RANITIDINE HYDROCHLORIDE [Concomitant]
     Indication: PROPHYLACTIC CHEMOTHERAPY
     Dosage: 100ML per day
     Route: 042
     Dates: start: 20120404
  11. CLEMASTINE HYDROGEN FUMARATE [Concomitant]
     Indication: PROPHYLACTIC CHEMOTHERAPY
     Dosage: 100ML per day
     Route: 042
     Dates: start: 20120404
  12. ONDANSETRON [Concomitant]
     Indication: PROPHYLACTIC CHEMOTHERAPY
     Dosage: 8MG per day
     Route: 042
     Dates: start: 20120404
  13. GLUCOSE 5% [Concomitant]
     Indication: PROPHYLACTIC CHEMOTHERAPY
     Dosage: 100ML per day
     Route: 042
     Dates: start: 20120404
  14. CALCIUM [Concomitant]
     Indication: PROPHYLACTIC CHEMOTHERAPY
     Dosage: 100ML per day
     Route: 042
     Dates: start: 20120404
  15. LOPERAMIDE HYDROCHLORIDE [Concomitant]
     Indication: DIARRHOEA
     Dosage: 2MG per day
     Route: 048
     Dates: start: 20120404, end: 20120829
  16. METOCLOPRAMIDE [Concomitant]
     Route: 048
     Dates: start: 20120411, end: 20120829
  17. NOVAMINSULFON [Concomitant]
     Route: 048
     Dates: start: 20120801

REACTIONS (1)
  - Eczema [Recovered/Resolved]
